FAERS Safety Report 13508731 (Version 1)
Quarter: 2017Q2

REPORT INFORMATION
  Report Type: Spontaneous
  Country: US (occurrence: US)
  Receive Date: 20170503
  Receipt Date: 20170503
  Transmission Date: 20170830
  Serious: No
  Sender: FDA-Public Use
  Company Number: US-ASTRAZENECA-2016SF22023

PATIENT
  Sex: Female
  Weight: 93.9 kg

DRUGS (2)
  1. BYDUREON [Suspect]
     Active Substance: EXENATIDE
     Indication: DIABETES MELLITUS
     Route: 058
     Dates: start: 20161017
  2. BYDUREON [Suspect]
     Active Substance: EXENATIDE
     Indication: GLYCOSYLATED HAEMOGLOBIN INCREASED
     Route: 058
     Dates: start: 20161017

REACTIONS (7)
  - Injection site erythema [Unknown]
  - Injection site mass [Unknown]
  - Headache [Unknown]
  - Injection site pruritus [Unknown]
  - Nausea [Unknown]
  - Injection site reaction [Unknown]
  - Injection site swelling [Unknown]
